FAERS Safety Report 16285424 (Version 1)
Quarter: 2019Q2

REPORT INFORMATION
  Report Type: Spontaneous
  Country: FR (occurrence: FR)
  Receive Date: 20190508
  Receipt Date: 20190508
  Transmission Date: 20190711
  Serious: Yes (Hospitalization)
  Sender: FDA-Public Use
  Company Number: FR-ACCORD-126347

PATIENT
  Age: 52 Year
  Sex: Female
  Weight: 48 kg

DRUGS (2)
  1. CARBOPLATIN. [Suspect]
     Active Substance: CARBOPLATIN
     Indication: CERVIX CARCINOMA
     Dosage: DATE OF LAST ADMINISTRATION 07-MAY-2012
     Route: 041
     Dates: start: 20120507
  2. ETOPOSIDE. [Suspect]
     Active Substance: ETOPOSIDE
     Indication: CERVIX CARCINOMA
     Route: 041
     Dates: start: 20120507

REACTIONS (1)
  - Pancytopenia [Recovered/Resolved]

NARRATIVE: CASE EVENT DATE: 20120516
